FAERS Safety Report 18263083 (Version 1)
Quarter: 2020Q3

REPORT INFORMATION
  Report Type: Spontaneous
  Country: US (occurrence: US)
  Receive Date: 20200914
  Receipt Date: 20200914
  Transmission Date: 20201103
  Serious: No
  Sender: FDA-Public Use
  Company Number: US-MSNLABS-2020MSNSPO00349

PATIENT

DRUGS (1)
  1. PREGABALIN CAPSULES 50MG [Suspect]
     Active Substance: PREGABALIN
     Indication: NEUROPATHY PERIPHERAL
     Route: 065

REACTIONS (5)
  - Thinking abnormal [Unknown]
  - Speech disorder [Unknown]
  - Depression [Unknown]
  - Body height decreased [Unknown]
  - Mood swings [Unknown]
